FAERS Safety Report 12560683 (Version 2)
Quarter: 2016Q3

REPORT INFORMATION
  Report Type: Spontaneous
  Country: US (occurrence: US)
  Receive Date: 20160715
  Receipt Date: 20160721
  Transmission Date: 20161109
  Serious: Yes (Other)
  Sender: FDA-Public Use
  Company Number: US-HORIZON-RAV-0128-2016

PATIENT
  Age: 3 Year
  Sex: Female

DRUGS (2)
  1. RAVICTI [Suspect]
     Active Substance: GLYCEROL PHENYLBUTYRATE
     Indication: UREA CYCLE ENZYME DEFICIENCY
     Dosage: 1.5 ML TID
     Dates: start: 20160120
  2. L-CITRULLINE POWDER [Concomitant]
     Dosage: 2.2 G

REACTIONS (2)
  - Hyperammonaemia [Unknown]
  - Complication associated with device [Recovered/Resolved]

NARRATIVE: CASE EVENT DATE: 20160608
